FAERS Safety Report 5399534-5 (Version None)
Quarter: 2007Q3

REPORT INFORMATION
  Report Type: 
  Country: None (occurrence: None)
  Receive Date: 20070727
  Receipt Date: 20070717
  Transmission Date: 20080115
  Serious: Yes (Other)
  Sender: FDA-Public Use
  Company Number: US-PFIZER INC-2007058709

PATIENT
  Sex: Female
  Weight: 50.909 kg

DRUGS (8)
  1. NEURONTIN [Suspect]
     Indication: SCIATIC NERVE INJURY
  2. NEURONTIN [Suspect]
  3. NEURONTIN [Suspect]
  4. TRAMADOL HCL [Suspect]
     Indication: PAIN
  5. METHADONE HCL [Suspect]
     Indication: PAIN
  6. ANTIDEPRESSANTS [Concomitant]
  7. CELEBREX [Concomitant]
  8. ADVAIR DISKUS 100/50 [Concomitant]

REACTIONS (6)
  - ABDOMINAL PAIN [None]
  - BLADDER DISORDER [None]
  - INCORRECT DOSE ADMINISTERED [None]
  - PAIN [None]
  - WEIGHT DECREASED [None]
  - WRONG TECHNIQUE IN DRUG USAGE PROCESS [None]
